FAERS Safety Report 20346180 (Version 1)
Quarter: 2022Q1

REPORT INFORMATION
  Report Type: Spontaneous
  Country: AU (occurrence: AU)
  Receive Date: 20220118
  Receipt Date: 20220118
  Transmission Date: 20220423
  Serious: Yes (Hospitalization, Other)
  Sender: FDA-Public Use
  Company Number: AU-EDENBRIDGE PHARMACEUTICALS, LLC-AU-2022EDE000003

PATIENT
  Age: 68 Year
  Sex: Male

DRUGS (4)
  1. DILTIAZEM HYDROCHLORIDE [Suspect]
     Active Substance: DILTIAZEM HYDROCHLORIDE
     Indication: Heart rate
     Route: 048
  2. IBRUTINIB [Suspect]
     Active Substance: IBRUTINIB
     Indication: Mantle cell lymphoma
     Dosage: 560 MG, QD
  3. METOPROLOL [Suspect]
     Active Substance: METOPROLOL
     Indication: Heart rate
     Dosage: UNK
  4. DIGOXIN [Suspect]
     Active Substance: DIGOXIN
     Indication: Heart rate
     Dosage: UNK

REACTIONS (3)
  - Cardiac arrest [Unknown]
  - Drug interaction [Unknown]
  - Toxicity to various agents [Unknown]
